FAERS Safety Report 18639822 (Version 2)
Quarter: 2021Q1

REPORT INFORMATION
  Report Type: Spontaneous
  Country: US (occurrence: US)
  Receive Date: 20201220
  Receipt Date: 20210114
  Transmission Date: 20210419
  Serious: No
  Sender: FDA-Public Use
  Company Number: US-ASTRAZENECA-2020SF59387

PATIENT
  Age: 26561 Day
  Sex: Female
  Weight: 77.1 kg

DRUGS (15)
  1. PRAVASTATIN. [Concomitant]
     Active Substance: PRAVASTATIN
  2. VASCEPA [Concomitant]
     Active Substance: ICOSAPENT ETHYL
  3. BYDUREON BCISE [Suspect]
     Active Substance: EXENATIDE
     Indication: TYPE 2 DIABETES MELLITUS
     Route: 058
  4. GABAPENTIN. [Concomitant]
     Active Substance: GABAPENTIN
     Indication: INFLAMMATION
     Dosage: 300 MG IN THE MORNING, 600 MG IN THE EVENING
  5. ZOLPIDEM [Concomitant]
     Active Substance: ZOLPIDEM TARTRATE
  6. METFORMIN [Concomitant]
     Active Substance: METFORMIN HYDROCHLORIDE
     Dosage: 500 BID
  7. CITRACAL [Concomitant]
     Active Substance: CALCIUM CITRATE
  8. VITAMINS [Concomitant]
     Active Substance: VITAMINS
  9. TRAMADOL. [Concomitant]
     Active Substance: TRAMADOL
     Dosage: 50
  10. VITAMIN C [Concomitant]
     Active Substance: ASCORBIC ACID
  11. MELOXICAM. [Concomitant]
     Active Substance: MELOXICAM
     Dosage: 7.5MG UNKNOWN
  12. VITAMIN D [Concomitant]
     Active Substance: VITAMIN D NOS
  13. ATENOLOL. [Concomitant]
     Active Substance: ATENOLOL
  14. ESETIMIBE [Concomitant]
     Dosage: 10.0MG UNKNOWN
  15. TURMERIC [Concomitant]
     Active Substance: HERBALS\TURMERIC

REACTIONS (13)
  - Road traffic accident [Not Recovered/Not Resolved]
  - Gait disturbance [Not Recovered/Not Resolved]
  - Device malfunction [Unknown]
  - Pain in extremity [Not Recovered/Not Resolved]
  - Injection site pain [Unknown]
  - Weight increased [Not Recovered/Not Resolved]
  - Swelling [Not Recovered/Not Resolved]
  - Inflammation [Not Recovered/Not Resolved]
  - Insomnia [Not Recovered/Not Resolved]
  - Injection site haemorrhage [Unknown]
  - Arthralgia [Not Recovered/Not Resolved]
  - Injection site mass [Unknown]
  - Blood glucose increased [Unknown]

NARRATIVE: CASE EVENT DATE: 20201118
